FAERS Safety Report 15801675 (Version 1)
Quarter: 2019Q1

REPORT INFORMATION
  Report Type: Spontaneous
  Country: US (occurrence: US)
  Receive Date: 20190104
  Receipt Date: 20190104
  Transmission Date: 20190417
  Serious: Yes (Hospitalization)
  Sender: FDA-Public Use
  Company Number: None

PATIENT
  Age: 68 Year
  Sex: Male

DRUGS (3)
  1. OPSUMIT [Suspect]
     Active Substance: MACITENTAN
     Indication: PULMONARY ARTERIAL HYPERTENSION
     Route: 048
     Dates: start: 20161215
  2. OPSUMIT [Suspect]
     Active Substance: MACITENTAN
     Indication: HEART DISEASE CONGENITAL
     Route: 048
     Dates: start: 20161215
  3. OPSUMIT [Suspect]
     Active Substance: MACITENTAN
     Indication: CONNECTIVE TISSUE DISORDER
     Route: 048
     Dates: start: 20161215

REACTIONS (1)
  - Fluid overload [None]

NARRATIVE: CASE EVENT DATE: 20181226
